FAERS Safety Report 7426271 (Version 2)
Quarter: 2013Q1

REPORT INFORMATION
  Report Type: Spontaneous
  Country: GB (occurrence: GB)
  Receive Date: 20100621
  Receipt Date: 20130225
  Transmission Date: 20140127
  Serious: Yes (Other)
  Sender: FDA-Public Use
  Company Number: PHFR2004GB01292

PATIENT
  Age: 24 Year
  Sex: Male
  Weight: 69.7 kg

DRUGS (5)
  1. CLOZARIL [Suspect]
     Indication: SCHIZOPHRENIA
     Dosage: UNK UKN, UNK
     Route: 048
     Dates: start: 20011009
  2. CLOZARIL [Suspect]
     Dosage: 650MG/DAY
     Dates: end: 20040303
  3. VALPROATE SODIUM [Concomitant]
     Dosage: 1G/DAY
     Route: 048
     Dates: start: 200301
  4. PARACETAMOL [Concomitant]
  5. AMISULPRIDE [Concomitant]
     Indication: SCHIZOPHRENIA
     Dosage: 800MG/DAY
     Route: 048
     Dates: start: 200301, end: 200311

REACTIONS (6)
  - Viral infection [Unknown]
  - Neutropenia [Recovered/Resolved]
  - Neutrophil count decreased [Unknown]
  - Grand mal convulsion [Recovered/Resolved]
  - Electroencephalogram abnormal [Unknown]
  - Malaise [Unknown]
